FAERS Safety Report 7114001-6 (Version None)
Quarter: 2010Q4

REPORT INFORMATION
  Report Type: 
  Country: None (occurrence: None)
  Receive Date: 20101119
  Receipt Date: 20101116
  Transmission Date: 20110411
  Serious: Yes (Hospitalization)
  Sender: FDA-Public Use
  Company Number: A0893368A

PATIENT
  Sex: Female

DRUGS (4)
  1. NARAMIG [Suspect]
     Indication: MIGRAINE
     Route: 065
     Dates: start: 20080101
  2. ACETAMINOPHEN [Concomitant]
     Dates: start: 20000101
  3. METAMIZOLE [Concomitant]
     Dates: start: 20000101
  4. PLASIL [Concomitant]
     Dates: start: 20080101

REACTIONS (3)
  - DRUG INEFFECTIVE [None]
  - MENINGIOMA [None]
  - MENINGIOMA SURGERY [None]
